FAERS Safety Report 21243085 (Version 1)
Quarter: 2022Q3

REPORT INFORMATION
  Report Type: Spontaneous
  Country: IN (occurrence: IN)
  Receive Date: 20220823
  Receipt Date: 20220823
  Transmission Date: 20221026
  Serious: Yes (Hospitalization)
  Sender: FDA-Public Use
  Company Number: IN-PFIZER INC-PV202200045696

PATIENT
  Age: 41 Year
  Sex: Male

DRUGS (1)
  1. CRIZOTINIB [Suspect]
     Active Substance: CRIZOTINIB
     Route: 048

REACTIONS (11)
  - Headache [Unknown]
  - Oedema peripheral [Unknown]
  - Dyspnoea [Unknown]
  - Cough [Unknown]
  - Pyrexia [Unknown]
  - Chest pain [Unknown]
  - Procalcitonin increased [Unknown]
  - Neoplasm progression [Unknown]
  - Respiratory rate increased [Unknown]
  - Hepatic steatosis [Unknown]
  - Hernia [Unknown]
